FAERS Safety Report 21200867 (Version 1)
Quarter: 2022Q3

REPORT INFORMATION
  Report Type: Other
  Country: CN (occurrence: None)
  Receive Date: 20220811
  Receipt Date: 20220811
  Transmission Date: 20221027
  Serious: Yes (Other)
  Sender: FDA-Public Use
  Company Number: CN-ROCHE-3154778

PATIENT
  Age: 39 Year
  Sex: Female

DRUGS (8)
  1. BEVACIZUMAB [Suspect]
     Active Substance: BEVACIZUMAB
     Indication: Cervix carcinoma
     Dosage: DAY 3
     Route: 065
     Dates: start: 20210918
  2. PACLITAXEL [Suspect]
     Active Substance: PACLITAXEL
     Indication: Cervix carcinoma
     Dosage: DAY 1
     Route: 065
     Dates: start: 20210918
  3. CISPLATIN [Suspect]
     Active Substance: CISPLATIN
     Indication: Cervix carcinoma
     Dosage: DAY 2
     Route: 065
     Dates: start: 20210918
  4. ATROPINE [Concomitant]
     Active Substance: ATROPINE
  5. AMIODARONE [Concomitant]
     Active Substance: AMIODARONE
  6. IMIPENEM [Concomitant]
     Active Substance: IMIPENEM
     Route: 042
  7. CILASTATIN SODIUM [Concomitant]
     Active Substance: CILASTATIN SODIUM
     Route: 042
  8. MEROPENEM [Concomitant]
     Active Substance: MEROPENEM
     Route: 042

REACTIONS (1)
  - Liver injury [Unknown]
